FAERS Safety Report 23856453 (Version 4)
Quarter: 2024Q3

REPORT INFORMATION
  Report Type: Spontaneous
  Country: US (occurrence: US)
  Receive Date: 20240515
  Receipt Date: 20240702
  Transmission Date: 20241016
  Serious: Yes (Congenital Anomaly)
  Sender: QILU PHARMACEUTICAL
  Company Number: US-QILU PHARMACEUTICAL CO.LTD.-QLU-000049-2024

PATIENT
  Sex: Male
  Weight: 2.02 kg

DRUGS (5)
  1. TENOFOVIR DISOPROXIL FUMARATE [Suspect]
     Active Substance: TENOFOVIR DISOPROXIL FUMARATE
     Indication: Perinatal HIV infection
     Dosage: 300 MG PER DAY
     Route: 064
     Dates: start: 20220901
  2. DARUNAVIR [Suspect]
     Active Substance: DARUNAVIR
     Indication: Perinatal HIV infection
     Dosage: 1200 MG PER DAY
     Route: 064
     Dates: start: 20210716
  3. RITONAVIR [Suspect]
     Active Substance: RITONAVIR
     Indication: Perinatal HIV infection
     Dosage: 200 MG PER DAY
     Route: 064
     Dates: start: 20170314
  4. TIVICAY [Suspect]
     Active Substance: DOLUTEGRAVIR SODIUM
     Indication: Perinatal HIV infection
     Dosage: 500 MG PER DAY
     Route: 064
     Dates: start: 20220901
  5. FOLIC ACID [Suspect]
     Active Substance: FOLIC ACID
     Indication: Product used for unknown indication
     Dosage: UNK
     Route: 064

REACTIONS (2)
  - Scrotal cyst [Unknown]
  - Foetal exposure during pregnancy [Unknown]
